FAERS Safety Report 7992863-8 (Version None)
Quarter: 2011Q4

REPORT INFORMATION
  Report Type: 
  Country: None (occurrence: None)
  Receive Date: 20111219
  Receipt Date: 20110204
  Transmission Date: 20120403
  Serious: No
  Sender: FDA-Public Use
  Company Number: US-ASTRAZENECA-2011SE06435

PATIENT
  Age: 62 Year
  Sex: Female
  Weight: 69.4 kg

DRUGS (3)
  1. CRESTOR [Suspect]
     Route: 048
  2. LOSARTAN POTASSIUM [Concomitant]
  3. TOPROL-XL [Suspect]
     Indication: HYPERCHOLESTEROLAEMIA
     Route: 048

REACTIONS (3)
  - VISUAL IMPAIRMENT [None]
  - EAR DISORDER [None]
  - SINUSITIS [None]
